FAERS Safety Report 25825181 (Version 1)
Quarter: 2025Q3

REPORT INFORMATION
  Report Type: Spontaneous
  Country: EU (occurrence: EU)
  Receive Date: 20250919
  Receipt Date: 20250919
  Transmission Date: 20251020
  Serious: Yes (Death, Other)
  Sender: REGENERON
  Company Number: EU-REGENERON PHARMACEUTICALS, INC.-2025-148152

PATIENT
  Age: 94 Year
  Sex: Male

DRUGS (4)
  1. LIBTAYO [Suspect]
     Active Substance: CEMIPLIMAB-RWLC
     Indication: Product used for unknown indication
     Dates: start: 20250902
  2. APIXABAN [Concomitant]
     Active Substance: APIXABAN
     Indication: Product used for unknown indication
  3. DALTEPARIN [Concomitant]
     Active Substance: DALTEPARIN
     Indication: Product used for unknown indication
     Dosage: 5000 [IU], BID
  4. IMIQUIMOD [Concomitant]
     Active Substance: IMIQUIMOD
     Indication: Actinic keratosis

REACTIONS (12)
  - Cerebrovascular accident [Fatal]
  - Thrombosis [Unknown]
  - Pseudomonas infection [Unknown]
  - Pain [Unknown]
  - Eye pain [Unknown]
  - Pleural effusion [Unknown]
  - Erythema [Unknown]
  - Pruritus [Unknown]
  - Ocular hyperaemia [Unknown]
  - Weight decreased [Unknown]
  - Actinic keratosis [Unknown]
  - Urinary tract infection [Unknown]
